FAERS Safety Report 14185992 (Version 1)
Quarter: 2017Q4

REPORT INFORMATION
  Report Type: Spontaneous
  Country: US (occurrence: US)
  Receive Date: 20171114
  Receipt Date: 20171114
  Transmission Date: 20180321
  Serious: Yes (Other)
  Sender: FDA-Public Use
  Company Number: US-GLAXOSMITHKLINE-US2017171116

PATIENT
  Age: 40 Year
  Sex: Female

DRUGS (12)
  1. BENLYSTA [Suspect]
     Active Substance: BELIMUMAB
     Indication: SYSTEMIC LUPUS ERYTHEMATOSUS
     Dosage: 200 MG, UNK
     Route: 058
     Dates: start: 20171011
  2. CALCIUM [Concomitant]
     Active Substance: CALCIUM
  3. PREDNISONE. [Concomitant]
     Active Substance: PREDNISONE
  4. BENLYSTA [Suspect]
     Active Substance: BELIMUMAB
     Dosage: UNK
     Dates: start: 2012
  5. TOPAMAX [Concomitant]
     Active Substance: TOPIRAMATE
  6. ZOLOFT [Concomitant]
     Active Substance: SERTRALINE HYDROCHLORIDE
  7. PLAQUENIL [Concomitant]
     Active Substance: HYDROXYCHLOROQUINE SULFATE
  8. CELLCEPT [Concomitant]
     Active Substance: MYCOPHENOLATE MOFETIL\MYCOPHENOLATE MOFETIL HYDROCHLORIDE
  9. GABAPENTIN. [Concomitant]
     Active Substance: GABAPENTIN
  10. VERAPAMIL [Concomitant]
     Active Substance: VERAPAMIL HYDROCHLORIDE
  11. RECLAST [Concomitant]
     Active Substance: ZOLEDRONIC ACID
  12. SODIUM BICARBONATE. [Concomitant]
     Active Substance: SODIUM BICARBONATE

REACTIONS (7)
  - Lumbar vertebral fracture [Unknown]
  - Cough [Unknown]
  - Pruritus [Unknown]
  - Rib fracture [Unknown]
  - Erythema [Unknown]
  - Herpes zoster [Unknown]
  - Foot fracture [Unknown]

NARRATIVE: CASE EVENT DATE: 20171025
